FAERS Safety Report 8691078 (Version 3)
Quarter: 2013Q4

REPORT INFORMATION
  Report Type: Spontaneous
  Country: US (occurrence: US)
  Receive Date: 20120730
  Receipt Date: 20131105
  Transmission Date: 20140711
  Serious: Yes (Hospitalization, Other)
  Sender: FDA-Public Use
  Company Number: US-009507513-1207USA009589

PATIENT
  Age: 66 Year
  Sex: Female

DRUGS (8)
  1. FOSAMAX [Suspect]
     Indication: BONE LOSS
     Dosage: 70 MG, QW
     Route: 048
     Dates: start: 2001, end: 2010
  2. LIPITOR [Concomitant]
  3. ACCUPRIL [Concomitant]
  4. PROCARDIA [Concomitant]
  5. ZOLOFT [Concomitant]
  6. PROPRANOLOL HYDROCHLORIDE [Concomitant]
  7. SINEMET [Concomitant]
  8. MIRAPEX [Concomitant]

REACTIONS (8)
  - Fall [Not Recovered/Not Resolved]
  - Arthrodesis [Not Recovered/Not Resolved]
  - Hip arthroplasty [Not Recovered/Not Resolved]
  - Femur fracture [Not Recovered/Not Resolved]
  - Osteogenesis imperfecta [Not Recovered/Not Resolved]
  - Fall [Not Recovered/Not Resolved]
  - Joint dislocation [Not Recovered/Not Resolved]
  - Pain [Not Recovered/Not Resolved]
